FAERS Safety Report 19081995 (Version 1)
Quarter: 2021Q2

REPORT INFORMATION
  Report Type: Spontaneous
  Country: AU (occurrence: AU)
  Receive Date: 20210401
  Receipt Date: 20210401
  Transmission Date: 20210717
  Serious: Yes (Hospitalization)
  Sender: FDA-Public Use
  Company Number: AU-JNJFOC-20210353382

PATIENT
  Age: 66 Year
  Sex: Male
  Weight: 69.4 kg

DRUGS (3)
  1. INVEGA SUSTENNA [Suspect]
     Active Substance: PALIPERIDONE PALMITATE
     Dosage: MAINTENANCE DOSE
     Route: 030
     Dates: end: 20210216
  2. INVEGA SUSTENNA [Suspect]
     Active Substance: PALIPERIDONE PALMITATE
  3. INVEGA SUSTENNA [Suspect]
     Active Substance: PALIPERIDONE PALMITATE
     Indication: SCHIZOPHRENIA
     Dosage: START DOSE
     Route: 030
     Dates: start: 20201215

REACTIONS (3)
  - Hospitalisation [Unknown]
  - Aggression [Unknown]
  - Delusion [Unknown]

NARRATIVE: CASE EVENT DATE: 202102
